FAERS Safety Report 25204027 (Version 1)
Quarter: 2025Q2

REPORT INFORMATION
  Report Type: Spontaneous
  Country: US (occurrence: US)
  Receive Date: 20250416
  Receipt Date: 20250416
  Transmission Date: 20250716
  Serious: Yes (Other)
  Sender: LUNDBECK
  Company Number: US-LUNDBECK-DKLU4013281

PATIENT
  Age: 15 Year
  Sex: Male
  Weight: 36.242 kg

DRUGS (6)
  1. SABRIL [Suspect]
     Active Substance: VIGABATRIN
     Indication: Partial seizures
     Dosage: 2 DOSAGE FORM
  2. SABRIL [Suspect]
     Active Substance: VIGABATRIN
     Indication: Infantile spasms
  3. SABRIL [Suspect]
     Active Substance: VIGABATRIN
     Indication: Focal dyscognitive seizures
  4. TOBRAMYCIN [Concomitant]
     Active Substance: TOBRAMYCIN
     Indication: Product used for unknown indication
  5. CAYSTON [Concomitant]
     Active Substance: AZTREONAM
     Indication: Product used for unknown indication
  6. PULMOZYME [Concomitant]
     Active Substance: DORNASE ALFA
     Indication: Product used for unknown indication

REACTIONS (1)
  - Pneumonia [Unknown]
